FAERS Safety Report 8722279 (Version 5)
Quarter: 2013Q4

REPORT INFORMATION
  Report Type: Spontaneous
  Country: US (occurrence: US)
  Receive Date: 20120814
  Receipt Date: 20131106
  Transmission Date: 20140711
  Serious: Yes (Hospitalization, Other)
  Sender: FDA-Public Use
  Company Number: US-009507513-1208USA001527

PATIENT
  Sex: Female

DRUGS (7)
  1. FOSAMAX [Suspect]
     Indication: OSTEOPOROSIS
     Dosage: 70 MG, QW
     Route: 048
     Dates: start: 1998
  2. FOSAMAX [Suspect]
     Indication: DERMATOMYOSITIS
  3. ALENDRONATE SODIUM [Suspect]
     Indication: OSTEOPOROSIS
     Dosage: 70 MG, UNK
     Route: 048
  4. ALENDRONATE SODIUM [Suspect]
     Indication: DERMATOMYOSITIS
  5. PREDNISONE [Concomitant]
     Indication: OSTEOPOROSIS
     Dosage: 1 MG, QD
  6. PREDNISONE [Concomitant]
     Indication: DERMATOMYOSITIS
  7. METHOTREXATE [Concomitant]
     Indication: DERMATOMYOSITIS
     Dosage: 0.6, QW
     Dates: start: 2000, end: 20120726

REACTIONS (16)
  - Femur fracture [Unknown]
  - Intramedullary rod insertion [Unknown]
  - Low turnover osteopathy [Unknown]
  - Fall [Unknown]
  - Ankle fracture [Unknown]
  - Fall [Unknown]
  - Hypertension [Unknown]
  - Hypercholesterolaemia [Unknown]
  - Type 1 diabetes mellitus [Unknown]
  - Arthritis [Unknown]
  - Osteopenia [Unknown]
  - Osteoarthritis [Unknown]
  - Glaucoma [Unknown]
  - Hysterectomy [Unknown]
  - Tonsillectomy [Unknown]
  - Off label use [Unknown]
